FAERS Safety Report 4824841-1 (Version None)
Quarter: 2005Q4

REPORT INFORMATION
  Report Type: 
  Country: None (occurrence: None)
  Receive Date: 20051012
  Receipt Date: 20050629
  Transmission Date: 20060501
  Serious: No
  Sender: FDA-Public Use
  Company Number: 2005S1000145

PATIENT
  Age: 37 Year
  Weight: 74.8 kg

DRUGS (2)
  1. CUBICIN [Suspect]
     Indication: SOFT TISSUE INFECTION
     Dosage: 350 MG; Q24H; IV
     Route: 042
     Dates: start: 20050618, end: 20050701
  2. CUBICIN [Suspect]
     Indication: STAPHYLOCOCCAL INFECTION
     Dosage: 350 MG; Q24H; IV
     Route: 042
     Dates: start: 20050618, end: 20050701

REACTIONS (2)
  - ARTHRALGIA [None]
  - MYALGIA [None]
